FAERS Safety Report 11072855 (Version 1)
Quarter: 2015Q2

REPORT INFORMATION
  Report Type: Spontaneous
  Country: SE (occurrence: SE)
  Receive Date: 20150428
  Receipt Date: 20150428
  Transmission Date: 20150821
  Serious: Yes (Other)
  Sender: FDA-Public Use
  Company Number: SE-TEVA-557050ISR

PATIENT
  Age: 16 Year
  Sex: Male

DRUGS (1)
  1. OLANZAPINE 7.5 MILLIGRAM TABLETTER PER ORAL [Suspect]
     Active Substance: OLANZAPINE
     Route: 048

REACTIONS (2)
  - Vision blurred [Recovered/Resolved]
  - Balance disorder [Recovered/Resolved]
